FAERS Safety Report 21072017 (Version 1)
Quarter: 2022Q3

REPORT INFORMATION
  Report Type: Spontaneous
  Country: US (occurrence: US)
  Receive Date: 20220712
  Receipt Date: 20220712
  Transmission Date: 20221027
  Serious: No
  Sender: FDA-Public Use
  Company Number: US-NOVOPROD-891824

PATIENT
  Age: 68 Year
  Sex: Male

DRUGS (1)
  1. RYBELSUS [Suspect]
     Active Substance: SEMAGLUTIDE
     Indication: Product used for unknown indication
     Dosage: 3 MG, QAM
     Route: 048
     Dates: start: 20220128

REACTIONS (5)
  - Fluid retention [Not Recovered/Not Resolved]
  - Gastrointestinal pain [Unknown]
  - Diarrhoea [Unknown]
  - Nausea [Recovered/Resolved]
  - Flatulence [Unknown]

NARRATIVE: CASE EVENT DATE: 20220129
